FAERS Safety Report 25543878 (Version 1)
Quarter: 2025Q3

REPORT INFORMATION
  Report Type: Report from Study
  Country: EU (occurrence: EU)
  Receive Date: 20250711
  Receipt Date: 20250711
  Transmission Date: 20251020
  Serious: Yes (Other)
  Sender: UCB
  Company Number: EU-UCBSA-2025040703

PATIENT

DRUGS (2)
  1. CERTOLIZUMAB PEGOL [Suspect]
     Active Substance: CERTOLIZUMAB PEGOL
     Indication: Rheumatoid arthritis
     Dosage: 400 MILLIGRAM, EV 2 WEEKS(QOW) ON WEEKS 0, 2, AND 4
     Route: 058
  2. CERTOLIZUMAB PEGOL [Suspect]
     Active Substance: CERTOLIZUMAB PEGOL
     Dosage: 200 MILLIGRAM, EV 2 WEEKS(QOW) FOR A MAXIMUM OF 24 WEEKS
     Route: 058

REACTIONS (33)
  - Pneumonia [Unknown]
  - Cardiac disorder [Unknown]
  - Pelvic fracture [Unknown]
  - Anaphylactic reaction [Unknown]
  - Poisoning [Unknown]
  - Otitis media [Unknown]
  - Infection [Unknown]
  - Infestation [Unknown]
  - Skin disorder [Unknown]
  - Cutaneous symptom [Unknown]
  - Gastrointestinal disorder [Unknown]
  - Musculoskeletal disorder [Unknown]
  - Connective tissue disorder [Unknown]
  - General symptom [Unknown]
  - Administration site reaction [Unknown]
  - Nervous system disorder [Unknown]
  - Mediastinal disorder [Unknown]
  - Respiratory disorder [Unknown]
  - Diaphragmatic disorder [Unknown]
  - Renal disorder [Unknown]
  - Urinary tract disorder [Unknown]
  - Blood disorder [Unknown]
  - Lymphatic disorder [Unknown]
  - Endocrine disorder [Unknown]
  - Eye disorder [Unknown]
  - Mental disorder [Unknown]
  - Ear disorder [Unknown]
  - Inner ear disorder [Unknown]
  - Immune system disorder [Unknown]
  - Reproductive tract disorder [Unknown]
  - Breast disorder [Unknown]
  - Injury [Unknown]
  - Procedural complication [Unknown]
